FAERS Safety Report 5849652-X (Version None)
Quarter: 2008Q3

REPORT INFORMATION
  Report Type: 
  Country: None (occurrence: None)
  Receive Date: 20080819
  Receipt Date: 20080811
  Transmission Date: 20090109
  Serious: Yes (Hospitalization)
  Sender: FDA-Public Use
  Company Number: US-GENENTECH-266141

PATIENT
  Sex: Male
  Weight: 74.83 kg

DRUGS (2)
  1. BEVACIZUMAB [Suspect]
     Indication: METASTATIC MALIGNANT MELANOMA
     Dosage: 15 MG/KG, Q21D
     Dates: start: 20080521, end: 20080703
  2. RAD001 [Suspect]
     Indication: METASTATIC MALIGNANT MELANOMA
     Dosage: 10 MG, QD
     Dates: start: 20080521, end: 20080713

REACTIONS (2)
  - DISEASE PROGRESSION [None]
  - TACHYCARDIA [None]
